FAERS Safety Report 11727184 (Version 2)
Quarter: 2015Q4

REPORT INFORMATION
  Report Type: Report from Study
  Country: US (occurrence: US)
  Receive Date: 20151112
  Receipt Date: 20151201
  Transmission Date: 20160304
  Serious: Yes (Hospitalization)
  Sender: FDA-Public Use
  Company Number: US-BIOGENIDEC-2015BI149632

PATIENT
  Age: 47 Year
  Sex: Female

DRUGS (12)
  1. VENLAFAXINE [Concomitant]
     Active Substance: VENLAFAXINE HYDROCHLORIDE
  2. ZETIA [Concomitant]
     Active Substance: EZETIMIBE
  3. ALPRAZOLAM. [Concomitant]
     Active Substance: ALPRAZOLAM
  4. TECFIDERA [Suspect]
     Active Substance: DIMETHYL FUMARATE
     Indication: MULTIPLE SCLEROSIS
     Route: 048
     Dates: start: 201509
  5. PAMELOR [Concomitant]
     Active Substance: NORTRIPTYLINE HYDROCHLORIDE
  6. ONDANSETRON [Concomitant]
     Active Substance: ONDANSETRON
  7. LAMOTRIGINE. [Concomitant]
     Active Substance: LAMOTRIGINE
  8. ELIDEL [Concomitant]
     Active Substance: PIMECROLIMUS
  9. OMEPRAZOLE. [Concomitant]
     Active Substance: OMEPRAZOLE
  10. TECFIDERA [Suspect]
     Active Substance: DIMETHYL FUMARATE
     Indication: MULTIPLE SCLEROSIS
     Route: 048
  11. MODAFINIL. [Concomitant]
     Active Substance: MODAFINIL
  12. SIMVASTATIN. [Concomitant]
     Active Substance: SIMVASTATIN

REACTIONS (4)
  - Mental disorder [Unknown]
  - Abdominal pain [Unknown]
  - Anxiety [Unknown]
  - Vomiting [Unknown]

NARRATIVE: CASE EVENT DATE: 20151031
